FAERS Safety Report 7307600-X (Version None)
Quarter: 2011Q1

REPORT INFORMATION
  Report Type: 
  Country: None (occurrence: None)
  Receive Date: 20110211
  Receipt Date: 20110201
  Transmission Date: 20110831
  Serious: Yes (Hospitalization)
  Sender: FDA-Public Use
  Company Number: 1000018660

PATIENT
  Age: 57 Year
  Sex: Female

DRUGS (3)
  1. XANAX [Concomitant]
  2. CELEXA [Suspect]
     Dosage: 20 MG (20 MG,1 IN 1 D),ORAL
     Route: 048
     Dates: start: 20110101
  3. LIPITOR (ATORVASTATIN CALICUM) (ATORVASTATIN CALCIUM) [Concomitant]

REACTIONS (1)
  - INAPPROPRIATE ANTIDIURETIC HORMONE SECRETION [None]
